FAERS Safety Report 6349854-2 (Version None)
Quarter: 2009Q3

REPORT INFORMATION
  Report Type: 
  Country: None (occurrence: None)
  Receive Date: 20090911
  Receipt Date: 20090902
  Transmission Date: 20100115
  Serious: Yes (Other)
  Sender: FDA-Public Use
  Company Number: US-AMGEN-QUU356115

PATIENT
  Sex: Female
  Weight: 50.8 kg

DRUGS (1)
  1. ENBREL [Suspect]
     Indication: RHEUMATOID ARTHRITIS
     Route: 058
     Dates: start: 20090622, end: 20090622

REACTIONS (7)
  - CHEST DISCOMFORT [None]
  - DYSPNOEA [None]
  - EYE IRRITATION [None]
  - EYELID OEDEMA [None]
  - HYPERSENSITIVITY [None]
  - OROPHARYNGEAL SWELLING [None]
  - RASH GENERALISED [None]
